FAERS Safety Report 13362073 (Version 1)
Quarter: 2017Q1

REPORT INFORMATION
  Report Type: Spontaneous
  Country: US (occurrence: US)
  Receive Date: 20170321
  Receipt Date: 20170321
  Transmission Date: 20170429
  Serious: No
  Sender: FDA-Public Use
  Company Number: None

PATIENT
  Age: 56 Year
  Sex: Male

DRUGS (1)
  1. HARVONI [Suspect]
     Active Substance: LEDIPASVIR\SOFOSBUVIR
     Indication: CHRONIC HEPATITIS C
     Dosage: 90/400MG DAILY BY MOUTH
     Route: 048
     Dates: start: 20170304

REACTIONS (6)
  - Swelling face [None]
  - Decreased appetite [None]
  - Pain [None]
  - Lip swelling [None]
  - Swollen tongue [None]
  - Headache [None]

NARRATIVE: CASE EVENT DATE: 20170317
